FAERS Safety Report 16697965 (Version 1)
Quarter: 2019Q3

REPORT INFORMATION
  Report Type: Spontaneous
  Country: JP (occurrence: JP)
  Receive Date: 20190813
  Receipt Date: 20190813
  Transmission Date: 20191004
  Serious: Yes (Hospitalization)
  Sender: FDA-Public Use
  Company Number: JP-CELGENEUS-JPN-20190803500

PATIENT
  Age: 70 Year
  Sex: Female
  Weight: 52 kg

DRUGS (7)
  1. ABRAXANE [Suspect]
     Active Substance: PACLITAXEL
     Indication: GASTRIC CANCER
     Dosage: 100 MILLIGRAM/SQ. METER
     Route: 041
     Dates: start: 20181211, end: 20190730
  2. SUCRALFATE. [Concomitant]
     Active Substance: SUCRALFATE
     Indication: PROPHYLAXIS AGAINST GASTROINTESTINAL ULCER
     Route: 048
     Dates: start: 2019
  3. BLOOD [Concomitant]
     Active Substance: WHOLE BLOOD
     Indication: TRANSFUSION
     Dosage: 4 UNITS
     Route: 041
     Dates: start: 20190803, end: 20190803
  4. CYRAMZA [Suspect]
     Active Substance: RAMUCIRUMAB
     Indication: GASTRIC CANCER
     Dosage: 8 MILLIGRAM/KILOGRAM
     Route: 041
     Dates: start: 20181211, end: 20190730
  5. AMLODIPINE [Concomitant]
     Active Substance: AMLODIPINE BESYLATE
     Indication: HYPERTENSION
     Dosage: 2.5 MILLIGRAM
     Route: 048
     Dates: start: 20190122
  6. ENEVO [Concomitant]
     Indication: PROPHYLAXIS
     Route: 048
     Dates: start: 2019
  7. TAKECAB [Concomitant]
     Active Substance: VONOPRAZAN FUMURATE
     Indication: PROPHYLAXIS AGAINST GASTROINTESTINAL ULCER
     Dosage: 20 MILLIGRAM
     Route: 048
     Dates: start: 20160101

REACTIONS (1)
  - Gastric haemorrhage [Recovering/Resolving]

NARRATIVE: CASE EVENT DATE: 20190802
